FAERS Safety Report 17065386 (Version 1)
Quarter: 2019Q4

REPORT INFORMATION
  Report Type: Spontaneous
  Country: US (occurrence: US)
  Receive Date: 20191122
  Receipt Date: 20191122
  Transmission Date: 20200122
  Serious: No
  Sender: FDA-Public Use
  Company Number: US-BRACCO-2019US04324

PATIENT
  Age: 67 Year
  Sex: Male

DRUGS (4)
  1. DOBUTAMINE [Suspect]
     Active Substance: DOBUTAMINE HYDROCHLORIDE
     Indication: STRESS ECHOCARDIOGRAM
     Dosage: UNK
     Dates: start: 20190823, end: 20190823
  2. SALINE                             /00075401/ [Concomitant]
     Active Substance: SODIUM CHLORIDE
     Dosage: 9 ML
     Route: 042
     Dates: start: 20190823, end: 20190823
  3. LUMASON [Suspect]
     Active Substance: SULFUR HEXAFLUORIDE
     Indication: STRESS ECHOCARDIOGRAM
     Dosage: 1 ML, SINGLE
     Route: 040
     Dates: start: 20190823, end: 20190823
  4. LUMASON [Suspect]
     Active Substance: SULFUR HEXAFLUORIDE
     Indication: STRESS ECHOCARDIOGRAM
     Dosage: 6 ML, SINGLE
     Route: 042
     Dates: start: 20190823, end: 20190823

REACTIONS (3)
  - Bundle branch block left [Recovered/Resolved]
  - Contrast media allergy [Recovered/Resolved]
  - Intentional product use issue [Recovered/Resolved]

NARRATIVE: CASE EVENT DATE: 20190823
